FAERS Safety Report 7449116-6 (Version None)
Quarter: 2011Q2

REPORT INFORMATION
  Report Type: 
  Country: None (occurrence: None)
  Receive Date: 20110502
  Receipt Date: 20101230
  Transmission Date: 20111010
  Serious: Yes (Hospitalization)
  Sender: FDA-Public Use
  Company Number: US-BAYER-200938991NA

PATIENT
  Age: 23 Year
  Sex: Female
  Weight: 84 kg

DRUGS (13)
  1. IBUPROFEN [Concomitant]
  2. ATARAX [ALPRAZOLAM] [Concomitant]
     Indication: PRURITUS
  3. ATARAX [ALPRAZOLAM] [Concomitant]
     Indication: RASH
  4. YASMIN [Suspect]
     Route: 048
     Dates: start: 20060101, end: 20060915
  5. ASPIRIN [Concomitant]
     Dates: start: 20060101
  6. YAZ [Suspect]
     Route: 048
     Dates: start: 20060101, end: 20060915
  7. ALBUTEROL [Concomitant]
  8. ZITHROMAX [Concomitant]
     Indication: SINUSITIS
  9. PHENERGAN [Concomitant]
     Indication: PAIN
     Dosage: UNK
     Dates: start: 20060915
  10. ZOLOFT [Concomitant]
     Dates: start: 20100101
  11. DARVOCET [Concomitant]
  12. TOPROL-XL [Concomitant]
     Dates: start: 20050101, end: 20070615
  13. EXCEDRIN (MIGRAINE) [Concomitant]

REACTIONS (2)
  - PULMONARY EMBOLISM [None]
  - THROMBOSIS [None]
